FAERS Safety Report 15522870 (Version 4)
Quarter: 2018Q4

REPORT INFORMATION
  Report Type: Spontaneous
  Country: US (occurrence: US)
  Receive Date: 20181017
  Receipt Date: 20181119
  Transmission Date: 20190205
  Serious: No
  Sender: FDA-Public Use
  Company Number: US-GLAXOSMITHKLINE-US2018183362

PATIENT
  Age: 80 Year
  Sex: Female

DRUGS (3)
  1. ABREVA [Suspect]
     Active Substance: DOCOSANOL
     Dosage: UNK( 5 TIMES A DAY), QD
     Dates: start: 20180930, end: 20181007
  2. ABREVA [Suspect]
     Active Substance: DOCOSANOL
     Indication: ORAL HERPES
     Dosage: UNK
  3. ABREVA [Suspect]
     Active Substance: DOCOSANOL
     Indication: ORAL HERPES
     Dosage: UNK( 5 TIMES A DAY), QD
     Dates: start: 20180930, end: 20181007

REACTIONS (3)
  - Incorrect product administration duration [Unknown]
  - Product complaint [Unknown]
  - Product physical consistency issue [Unknown]
